FAERS Safety Report 10896286 (Version 1)
Quarter: 2015Q1

REPORT INFORMATION
  Report Type: Report from Study
  Country: CO (occurrence: CO)
  Receive Date: 20150309
  Receipt Date: 20150309
  Transmission Date: 20150721
  Serious: Yes (Hospitalization)
  Sender: FDA-Public Use
  Company Number: CO-BRISTOL-MYERS SQUIBB COMPANY-BMS-2014-007437

PATIENT
  Sex: Female

DRUGS (1)
  1. CETUXIMAB [Suspect]
     Active Substance: CETUXIMAB
     Indication: COLORECTAL CANCER METASTATIC
     Dosage: 800 MG, QMO
     Route: 042
     Dates: start: 20140513, end: 20140601

REACTIONS (4)
  - Dry skin [Unknown]
  - Immunodeficiency [Unknown]
  - Asthenia [Unknown]
  - General physical health deterioration [Recovering/Resolving]
